FAERS Safety Report 24867645 (Version 1)
Quarter: 2025Q1

REPORT INFORMATION
  Report Type: Spontaneous
  Country: CN (occurrence: CN)
  Receive Date: 20250121
  Receipt Date: 20250121
  Transmission Date: 20250408
  Serious: Yes (Hospitalization)
  Sender: SANOFI AVENTIS
  Company Number: CN-SA-2025SA015979

PATIENT
  Age: 73 Year
  Sex: Male
  Weight: 73 kg

DRUGS (1)
  1. INSULIN GLARGINE\LIXISENATIDE [Suspect]
     Active Substance: INSULIN GLARGINE\LIXISENATIDE
     Indication: Blood glucose abnormal
     Dosage: 26 MG, QD
     Route: 058
     Dates: start: 20250111, end: 20250112

REACTIONS (3)
  - Decreased appetite [Recovering/Resolving]
  - Nausea [Recovering/Resolving]
  - Diarrhoea [Recovering/Resolving]

NARRATIVE: CASE EVENT DATE: 20250112
